FAERS Safety Report 10776107 (Version 2)
Quarter: 2015Q1

REPORT INFORMATION
  Report Type: Spontaneous
  Country: FR (occurrence: FR)
  Receive Date: 20150209
  Receipt Date: 20150323
  Transmission Date: 20150721
  Serious: Yes (Hospitalization, Other)
  Sender: FDA-Public Use
  Company Number: FR-PFIZER INC-2015044789

PATIENT
  Age: 46 Year
  Sex: Female

DRUGS (1)
  1. EFFEXOR LP [Suspect]
     Active Substance: VENLAFAXINE HYDROCHLORIDE
     Dosage: 75 MG, 1X/DAY
     Dates: start: 200801, end: 200807

REACTIONS (13)
  - Blindness [Not Recovered/Not Resolved]
  - Dural tear [Recovered/Resolved]
  - Iron deficiency anaemia [Recovered/Resolved]
  - Arteriovenous fistula [Recovered/Resolved]
  - Genital haemorrhage [Unknown]
  - Extrasystoles [Unknown]
  - Bladder disorder [Unknown]
  - Meningitis [Recovered/Resolved]
  - Intracranial pressure increased [Unknown]
  - Rhinorrhoea [Not Recovered/Not Resolved]
  - Cerebral venous thrombosis [Recovered/Resolved]
  - Community acquired infection [Recovered/Resolved]
  - Palpitations [Unknown]

NARRATIVE: CASE EVENT DATE: 200808
